FAERS Safety Report 24951157 (Version 1)
Quarter: 2025Q1

REPORT INFORMATION
  Report Type: Spontaneous
  Country: US (occurrence: US)
  Receive Date: 20250210
  Receipt Date: 20250210
  Transmission Date: 20250408
  Serious: No
  Sender: TEVA
  Company Number: US-TEVA-VS-3289393

PATIENT
  Age: 43 Year
  Sex: Female

DRUGS (1)
  1. UZEDY [Suspect]
     Active Substance: RISPERIDONE
     Indication: Schizophrenia
     Dosage: 250/0.7MG/ML
     Route: 065
     Dates: start: 202408

REACTIONS (3)
  - Urinary incontinence [Unknown]
  - Inappropriate schedule of product administration [Unknown]
  - Insurance issue [Unknown]
